FAERS Safety Report 8199212-3 (Version None)
Quarter: 2012Q1

REPORT INFORMATION
  Report Type: 
  Country: None (occurrence: None)
  Receive Date: 20120309
  Receipt Date: 20120214
  Transmission Date: 20120608
  Serious: No
  Sender: FDA-Public Use
  Company Number: US-BAYER-2011-053575

PATIENT
  Age: 36 Year
  Sex: Female
  Weight: 68.027 kg

DRUGS (4)
  1. GLUCOSAMINE [Concomitant]
  2. MIRENA [Suspect]
     Indication: CONTRACEPTION
     Dosage: 20 MCG/24HR, CONT
     Route: 015
     Dates: start: 20110221, end: 20110613
  3. CALCIUM [Concomitant]
  4. VITAMIN B COMPLEX CAP [Concomitant]

REACTIONS (4)
  - NERVOUSNESS [None]
  - ANXIETY [None]
  - ABNORMAL WEIGHT GAIN [None]
  - ERYTHEMA NODOSUM [None]
